FAERS Safety Report 11714422 (Version 5)
Quarter: 2016Q1

REPORT INFORMATION
  Report Type: Spontaneous
  Country: CA (occurrence: CA)
  Receive Date: 20151109
  Receipt Date: 20160106
  Transmission Date: 20160525
  Serious: Yes (Other)
  Sender: FDA-Public Use
  Company Number: CA-SA-2015SA174408

PATIENT
  Age: 14 Year
  Sex: Male
  Weight: 56.6 kg

DRUGS (4)
  1. ALLERJECT [Suspect]
     Active Substance: EPINEPHRINE
     Route: 065
  2. BENADRYL [Concomitant]
     Active Substance: DIPHENHYDRAMINE HYDROCHLORIDE
     Dates: start: 20151010
  3. VENTOLIN [Concomitant]
     Active Substance: ALBUTEROL SULFATE
     Route: 065
  4. QVAR [Concomitant]
     Active Substance: BECLOMETHASONE DIPROPIONATE
     Route: 065

REACTIONS (9)
  - Condition aggravated [Recovered/Resolved]
  - Skin discolouration [Recovered/Resolved]
  - Underdose [Unknown]
  - Dizziness [Recovered/Resolved]
  - Swelling [Recovered/Resolved]
  - Hypotension [Recovered/Resolved]
  - Skin disorder [Recovered/Resolved]
  - Erythema [Recovered/Resolved]
  - PO2 [Recovered/Resolved]

NARRATIVE: CASE EVENT DATE: 20151010
